FAERS Safety Report 24642827 (Version 1)
Quarter: 2024Q4

REPORT INFORMATION
  Report Type: Spontaneous
  Country: CA (occurrence: CA)
  Receive Date: 20241120
  Receipt Date: 20241120
  Transmission Date: 20250114
  Serious: Yes (Other)
  Sender: FRESENIUS KABI
  Company Number: CA-FreseniusKabi-FK202417006

PATIENT
  Age: 66 Year
  Sex: Male

DRUGS (2)
  1. MIDAZOLAM HYDROCHLORIDE [Suspect]
     Active Substance: MIDAZOLAM HYDROCHLORIDE
     Indication: Product used for unknown indication
  2. FENTANYL [Concomitant]
     Active Substance: FENTANYL
     Indication: Product used for unknown indication
     Dosage: NOT SPECIFIED

REACTIONS (5)
  - Heart rate decreased [Unknown]
  - Hyperhidrosis [Unknown]
  - Oxygen saturation decreased [Unknown]
  - Oxygen therapy [Unknown]
  - Unresponsive to stimuli [Unknown]
